FAERS Safety Report 16949188 (Version 3)
Quarter: 2019Q4

REPORT INFORMATION
  Report Type: Spontaneous
  Country: IT (occurrence: IT)
  Receive Date: 20191023
  Receipt Date: 20191218
  Transmission Date: 20200122
  Serious: Yes (Other)
  Sender: FDA-Public Use
  Company Number: IT-TEVA-2019-IT-1125034

PATIENT
  Age: 85 Year
  Sex: Female
  Weight: 90 kg

DRUGS (1)
  1. ALLOPURINOLO TEVA ITALIA 300 MG COMPRESSE [Suspect]
     Active Substance: ALLOPURINOL
     Indication: HYPERURICAEMIA
     Dosage: 300 MILLIGRAM PER DAY
     Route: 048

REACTIONS (2)
  - Drug ineffective [Recovered/Resolved]
  - Hyperuricaemia [Recovered/Resolved]

NARRATIVE: CASE EVENT DATE: 20190901
